FAERS Safety Report 17663756 (Version 1)
Quarter: 2020Q2

REPORT INFORMATION
  Report Type: Other
  Country: DE (occurrence: DE)
  Receive Date: 20200414
  Receipt Date: 20200414
  Transmission Date: 20200713
  Serious: Yes (Death, Other)
  Sender: FDA-Public Use
  Company Number: DE-RECORDATI RARE DISEASES-2082810

PATIENT
  Sex: Male

DRUGS (5)
  1. GLUCOSE (DEXTROSE MONOHYDRATE) [Concomitant]
     Active Substance: DEXTROSE MONOHYDRATE
  2. CARBAGLU [Suspect]
     Active Substance: CARGLUMIC ACID
     Indication: CARBONIC ANHYDRASE GENE MUTATION
  3. SODIUM BENZOATE [Concomitant]
     Active Substance: SODIUM BENZOATE
  4. SODIUM PHENYLACETATE [Concomitant]
     Active Substance: SODIUM PHENYLACETATE
  5. L-ARGININE [Concomitant]
     Active Substance: ARGININE

REACTIONS (2)
  - Off label use [Unknown]
  - Drug ineffective for unapproved indication [Fatal]
